FAERS Safety Report 9558288 (Version 2)
Quarter: 2013Q3

REPORT INFORMATION
  Report Type: Spontaneous
  Country: US (occurrence: US)
  Receive Date: 20130926
  Receipt Date: 20130926
  Transmission Date: 20140515
  Serious: Yes (Other)
  Sender: FDA-Public Use
  Company Number: US-SANOFI-AVENTIS-THYM-1002334

PATIENT
  Age: 21 Month
  Sex: Male

DRUGS (1)
  1. ANTI-THYMOCYTE GLOBULIN (RABBIT) NOS [Suspect]
     Indication: HEART TRANSPLANT REJECTION
     Dosage: 16 MG, ONCE
     Route: 042
     Dates: start: 20110224, end: 20110224

REACTIONS (2)
  - Renal impairment [Unknown]
  - Blood creatinine increased [Unknown]
